FAERS Safety Report 8886791 (Version 1)
Quarter: 2012Q4

REPORT INFORMATION
  Report Type: 
  Country: US (occurrence: US)
  Receive Date: 20121105
  Receipt Date: 20121105
  Transmission Date: 20130627
  Serious: No
  Sender: FDA-Public Use
  Company Number: US-VERTEX PHARMACEUTICAL INC.-2012-023951

PATIENT
  Age: 65 Year
  Sex: Male
  Weight: 106 kg

DRUGS (7)
  1. VX-950 [Suspect]
     Indication: HEPATITIS C
     Dosage: 750 mg, tid
     Route: 048
  2. RIBAVIRIN [Concomitant]
     Indication: HEPATITIS C
     Dosage: 200 mg, UNK
  3. PEGASYS [Concomitant]
     Indication: HEPATITIS C
     Dosage: 180 ?g, UNK
  4. ALLOPURINOL [Concomitant]
     Dosage: 100 mg, UNK
  5. VITAMIN D3 [Concomitant]
     Dosage: 2000 ut, UNK
  6. AMLODIPINE [Concomitant]
     Dosage: 10 mg, UNK
  7. B COMPLEX                          /00212701/ [Concomitant]

REACTIONS (5)
  - Dehydration [Unknown]
  - Asthenia [Unknown]
  - Anaemia [Unknown]
  - Haemorrhoids [Unknown]
  - Diarrhoea [Unknown]
